FAERS Safety Report 8889489 (Version 1)
Quarter: 2012Q4

REPORT INFORMATION
  Report Type: Spontaneous
  Country: GB (occurrence: None)
  Receive Date: 20121031
  Receipt Date: 20121031
  Transmission Date: 20130627
  Serious: Yes (Disabling)
  Sender: FDA-Public Use
  Company Number: GB-1194692

PATIENT
  Age: 60 Year
  Sex: Male

DRUGS (1)
  1. MAXIDEX [Suspect]
     Dates: start: 20120924, end: 20121001

REACTIONS (2)
  - Oral candidiasis [None]
  - Dysphagia [None]
